FAERS Safety Report 4590129-X (Version None)
Quarter: 2005Q1

REPORT INFORMATION
  Report Type: 
  Country: None (occurrence: None)
  Receive Date: 20050217
  Receipt Date: 20050210
  Transmission Date: 20050727
  Serious: Yes (Hospitalization)
  Sender: FDA-Public Use
  Company Number: 2004102746

PATIENT
  Age: 56 Year
  Sex: Male
  Weight: 68 kg

DRUGS (2)
  1. LIPITOR [Suspect]
     Indication: HYPERCHOLESTEROLAEMIA
     Dosage: (20 MGM 1 IN 1 D), ORAL
     Route: 048
     Dates: start: 20010101
  2. ASPIRIN [Concomitant]

REACTIONS (7)
  - ABNORMAL BEHAVIOUR [None]
  - AMNESIA [None]
  - CONFUSIONAL STATE [None]
  - DISORIENTATION [None]
  - DIZZINESS [None]
  - ELECTROENCEPHALOGRAM ABNORMAL [None]
  - GLOBAL AMNESIA [None]
